FAERS Safety Report 4969667-3 (Version None)
Quarter: 2006Q2

REPORT INFORMATION
  Report Type: 
  Country: None (occurrence: None)
  Receive Date: 20060411
  Receipt Date: 20060406
  Transmission Date: 20061013
  Serious: Yes (Hospitalization)
  Sender: FDA-Public Use
  Company Number: IT-BOEHRINGER INGELHEIM PHARMACEUTICALS, INC.-2006-IT-00072IT

PATIENT
  Age: 42 Year
  Sex: Female

DRUGS (1)
  1. SPIRIVA [Suspect]
     Indication: CHRONIC OBSTRUCTIVE PULMONARY DISEASE
     Route: 055
     Dates: start: 20060315, end: 20060403

REACTIONS (4)
  - HYPOAESTHESIA ORAL [None]
  - PARAESTHESIA [None]
  - VERTIGO [None]
  - VISION BLURRED [None]
